FAERS Safety Report 13734681 (Version 1)
Quarter: 2017Q3

REPORT INFORMATION
  Report Type: Report from Study
  Country: None (occurrence: BR)
  Receive Date: 20170710
  Receipt Date: 20170710
  Transmission Date: 20171127
  Serious: Yes (Other)
  Sender: FDA-Public Use
  Company Number: BR-ABBVIE-17K-020-2029075-00

PATIENT
  Sex: Female
  Weight: 94 kg

DRUGS (5)
  1. BEZAFIBRATO [Concomitant]
     Indication: BLOOD CHOLESTEROL ABNORMAL
     Route: 048
     Dates: start: 201706
  2. ADDERA [Concomitant]
     Active Substance: CHOLECALCIFEROL
     Indication: VITAMIN D
     Route: 048
     Dates: start: 201702, end: 2017
  3. HUMIRA [Suspect]
     Active Substance: ADALIMUMAB
     Indication: RHEUMATOID ARTHRITIS
     Route: 058
     Dates: start: 20170408
  4. IRON [Concomitant]
     Active Substance: IRON
     Indication: MINERAL SUPPLEMENTATION
     Route: 048
     Dates: start: 201611, end: 201612
  5. PURAN [Concomitant]
     Active Substance: LEVOTHYROXINE SODIUM
     Indication: THYROID DISORDER
     Route: 048
     Dates: start: 2007

REACTIONS (14)
  - Joint range of motion decreased [Recovered/Resolved]
  - Retching [Unknown]
  - Perihepatic discomfort [Recovering/Resolving]
  - Scoliosis [Not Recovered/Not Resolved]
  - Bedridden [Recovered/Resolved]
  - Feeling abnormal [Recovered/Resolved]
  - Pyrexia [Recovered/Resolved]
  - Arthralgia [Unknown]
  - Malaise [Recovered/Resolved]
  - Loss of personal independence in daily activities [Recovered/Resolved]
  - Osteoarthritis [Not Recovered/Not Resolved]
  - Hepatitis [Recovering/Resolving]
  - Pain in extremity [Recovered/Resolved]
  - Migraine [Recovering/Resolving]

NARRATIVE: CASE EVENT DATE: 2017
